FAERS Safety Report 5387086-5 (Version None)
Quarter: 2007Q3

REPORT INFORMATION
  Report Type: 
  Country: None (occurrence: None)
  Receive Date: 20070711
  Receipt Date: 20070702
  Transmission Date: 20080115
  Serious: Yes (Hospitalization, Other)
  Sender: FDA-Public Use
  Company Number: 2007BI013104

PATIENT
  Sex: Female

DRUGS (1)
  1. NATALIZUMAB [Suspect]
     Indication: MULTIPLE SCLEROSIS
     Dosage: 300 MG; QM; IV
     Route: 042
     Dates: start: 20060830

REACTIONS (6)
  - GAIT DISTURBANCE [None]
  - INFECTION [None]
  - LUMBAR RADICULOPATHY [None]
  - MUSCLE SPASMS [None]
  - PAIN [None]
  - WHITE BLOOD CELL COUNT INCREASED [None]
